FAERS Safety Report 18214103 (Version 1)
Quarter: 2020Q3

REPORT INFORMATION
  Report Type: Spontaneous
  Country: JP (occurrence: JP)
  Receive Date: 20200831
  Receipt Date: 20200831
  Transmission Date: 20201103
  Serious: Yes (Hospitalization)
  Sender: FDA-Public Use
  Company Number: JP-ABBVIE-20K-087-3356544-00

PATIENT
  Age: 70 Year
  Sex: Male

DRUGS (2)
  1. KALETRA [Suspect]
     Active Substance: LOPINAVIR\RITONAVIR
     Indication: CORONAVIRUS INFECTION
     Dosage: 400MG/100MG
     Route: 048
  2. KALETRA [Suspect]
     Active Substance: LOPINAVIR\RITONAVIR
     Indication: PNEUMONIA VIRAL

REACTIONS (6)
  - Cardiac amyloidosis [Unknown]
  - Rhythm idioventricular [Unknown]
  - Nausea [Unknown]
  - Atrioventricular block [Recovering/Resolving]
  - Bradyarrhythmia [Recovering/Resolving]
  - Off label use [Unknown]
